FAERS Safety Report 9517899 (Version 2)
Quarter: 2014Q1

REPORT INFORMATION
  Report Type: Spontaneous
  Country: US (occurrence: None)
  Receive Date: 20130305
  Receipt Date: 20140306
  Transmission Date: 20141002
  Serious: Yes (Other)
  Sender: FDA-Public Use
  Company Number: 163-21880-12114097

PATIENT
  Age: 75 Year
  Sex: Male

DRUGS (42)
  1. REVLIMID (LENALIDOMIDE) (25 MILLIGRAM, CAPSULES) [Suspect]
     Indication: PLASMA CELL MYELOMA
     Dosage: 25 MG, 21 IN 28 D, PO
     Route: 048
     Dates: start: 20120719
  2. CYMBALTA (DULOXETINE HYDROCHLORIDE) (CAPSULES) [Concomitant]
  3. CALCITROL (CALCITROL) (CAPSULES) [Concomitant]
  4. TORSEMIDE (TORASEMIDE) (TABLETS) [Concomitant]
  5. AMLODIPINE (AMLODIPINE) (TABLETS) [Concomitant]
  6. FLUTICASONE PROP (SPRAY (NOT INHALATION)) [Concomitant]
  7. LYRICA (PREGABALIN) (CAPSULES) [Concomitant]
  8. POTASSIUM (POTASSIUM) (TABLETS) [Concomitant]
  9. SUCRALFATE (SUCRALFATE) (TABLETS) [Concomitant]
  10. ALENDRONATE (ALENDRONATE SODIUM) (TABLETS) [Concomitant]
  11. BISOPROLOL FUMARATE (BISOPROLOL FUMARATE) (TABLETS) [Concomitant]
  12. FENTANYL (FENTANYL) (POULTICE OR PATCH) [Concomitant]
  13. MIRTAZAPINE (MIRTAZAPINE) (TABLETS) [Concomitant]
  14. ONDANSETRON HCL (ONDANSETRON HYDROCHLORIDE) (TABLETS) [Concomitant]
  15. LEVOFLOXACIN (LEVOFLOXACIN) (TABLETS) [Concomitant]
  16. TAMSULOSIN HCL (TAMSULOSIN HYDROCHLORIDE) (CAPSULES) [Concomitant]
  17. METHOCARBAMOL (METHOCARBAMOL) (TABLETS) [Concomitant]
  18. CIPROFLOXACIN HCL (CIPROFLOXACIN HYDROCHLORIDE) (TABLETS) [Concomitant]
  19. ACTONEL (RISEDRONATE SODIUM) (TABLETS) [Concomitant]
  20. CHOLESTYRAMINE (COLESTYRAMINE) [Concomitant]
  21. DIPHENOXYLATE (DIPHENOXYLATE) (TABLETS) [Concomitant]
  22. WARFARIN (WARFARIN) (TABLETS) [Concomitant]
  23. HYDROCODONE-ACETAMINOPHEN (VICODIN) [Concomitant]
  24. METRONIDAZOLE (METRONIDAZOLE) [Concomitant]
  25. ALBUTEROL (SALBUTAMOL) (SOLUTION) [Concomitant]
  26. METANX (METANX) (TABLETS) [Concomitant]
  27. ZINC SULFATE (ZINC SULFATE) (TABLETS) [Concomitant]
  28. VITAMIN D2 (ERGOCALCIFEROL) [Concomitant]
  29. HYOSCYAMINE SULFATE (HYOSCYAMINE SULFATE) (TABLETS) [Concomitant]
  30. DRONABINOL (DRONABINOL) (CAPSULES) [Concomitant]
  31. COMBIVENT (COMBIVENT) (INHALANT) [Concomitant]
  32. METHYLPREDNISOLONE (METHYLPREDNISOLONE) (TABLETS) [Concomitant]
  33. NUCYNTA (TAPENTADOL HYDROCHLORIDE) (TABLETS) [Concomitant]
  34. FOLBIC (HEPAGRISEVIT FORTE-N TABLET) (TABLETS) [Concomitant]
  35. DILAUDID (HYDROMORPHONE HYDROCHLORIDE) (TABLETS) [Concomitant]
  36. FLORANEX (LACTINEX) (TABLETS) [Concomitant]
  37. VANCOCIN HCL (VANCOMYCIN HYDROCHLORIDE) [Concomitant]
  38. MAGNESIUM OXIDE (MAGNESIUM OXIDE) (TABLETS) [Concomitant]
  39. MEGACE (MEGESTROL ACETATE) (SUSPENSION) [Concomitant]
  40. CALCIUM (CALCIUM) (TABLETS) [Concomitant]
  41. ZINC (ZINC) (TABLETS) [Concomitant]
  42. MULTIVITAMINS (MULTIVITAMINS) (TABLETS) [Concomitant]

REACTIONS (4)
  - Pneumonia [None]
  - Diarrhoea [None]
  - Weight decreased [None]
  - Neuropathy peripheral [None]
